FAERS Safety Report 7353604-0 (Version None)
Quarter: 2011Q1

REPORT INFORMATION
  Report Type: 
  Country: None (occurrence: None)
  Receive Date: 20110315
  Receipt Date: 20110310
  Transmission Date: 20110831
  Serious: Yes (Hospitalization)
  Sender: FDA-Public Use
  Company Number: RO-ABBOTT-11P-135-0710493-00

PATIENT
  Sex: Female
  Weight: 76.6 kg

DRUGS (2)
  1. ZEMPLAR [Suspect]
     Indication: HYPERPARATHYROIDISM SECONDARY
     Route: 042
     Dates: start: 20110128, end: 20110206
  2. DIPIRIDAMOL [Concomitant]
     Indication: ANTIPLATELET THERAPY
     Route: 048

REACTIONS (2)
  - RASH ERYTHEMATOUS [None]
  - RASH PUSTULAR [None]
